FAERS Safety Report 7291700-7 (Version None)
Quarter: 2011Q1

REPORT INFORMATION
  Report Type: 
  Country: None (occurrence: None)
  Receive Date: 20110214
  Receipt Date: 20110207
  Transmission Date: 20110831
  Serious: Yes (Other)
  Sender: FDA-Public Use
  Company Number: NL-PFIZER INC-2011022651

PATIENT
  Age: 50 Year
  Sex: Male
  Weight: 95 kg

DRUGS (6)
  1. ANDROGEL [Concomitant]
     Dosage: 100 MG, 1X/DAY
  2. PEGVISOMANT [Suspect]
     Indication: ACROMEGALY
     Dosage: 15 MG, 1X/DAY
     Dates: start: 20101201
  3. ENALAPRIL [Concomitant]
     Indication: HYPERTENSION
     Dosage: 10 MG, UNK
     Route: 048
     Dates: start: 20100920
  4. ACENOCOUMAROL [Concomitant]
     Dosage: UNK
     Route: 048
     Dates: start: 20101220
  5. HYDROCHLOROTHIAZIDE [Concomitant]
     Indication: HYPERTENSION
     Dosage: 12.5 MG, UNK
     Route: 048
     Dates: start: 20100707
  6. METOPROLOL [Concomitant]
     Indication: HYPERTENSION
     Dosage: 100 MG, UNK
     Route: 048
     Dates: start: 20101220

REACTIONS (1)
  - ATRIAL FIBRILLATION [None]
